FAERS Safety Report 10291326 (Version 1)
Quarter: 2014Q3

REPORT INFORMATION
  Report Type: Spontaneous
  Country: US (occurrence: None)
  Receive Date: 20140709
  Receipt Date: 20140709
  Transmission Date: 20150326
  Serious: No
  Sender: FDA-Public Use
  Company Number: DL2014-0533

PATIENT
  Age: 22 Year
  Sex: Female

DRUGS (3)
  1. MISOPROSTOL TABLETS, 200 MG [Suspect]
     Active Substance: MISOPROSTOL
     Route: 002
     Dates: start: 20140427
  2. AZITHROMYCIN 500 MG [Concomitant]
  3. MIFEPRISTONE TABLETS, 200 MG (DANCO LABS) [Suspect]
     Active Substance: MIFEPRISTONE
     Indication: ABORTION INDUCED
     Route: 048
     Dates: start: 20140426

REACTIONS (3)
  - Hypotension [None]
  - Dizziness [None]
  - Haemorrhage [None]

NARRATIVE: CASE EVENT DATE: 20140428
